FAERS Safety Report 18510864 (Version 2)
Quarter: 2020Q4

REPORT INFORMATION
  Report Type: Spontaneous
  Country: IT (occurrence: IT)
  Receive Date: 20201117
  Receipt Date: 20201125
  Transmission Date: 20210114
  Serious: Yes (Hospitalization, Other)
  Sender: FDA-Public Use
  Company Number: IT-ADIENNEP-2020AD000539

PATIENT
  Age: 51 Year
  Sex: Male

DRUGS (12)
  1. THIOTEPA. [Suspect]
     Active Substance: THIOTEPA
     Indication: ALLOGENIC STEM CELL TRANSPLANTATION
     Dosage: THIOTEPA 5MG/KG DAILY ON DAYS -7 AND -6
  2. FLUDARABINE [Suspect]
     Active Substance: FLUDARABINE PHOSPHATE
     Indication: ALLOGENIC STEM CELL TRANSPLANTATION
     Dosage: FLUDARABINE 25MG/M2 DAILY ON DAYS -6 TO -5
  3. METHOTREXATE. [Suspect]
     Active Substance: METHOTREXATE
     Indication: ALLOGENIC STEM CELL TRANSPLANTATION
     Dosage: METHOTREXATE 15MG/M2 DAILY ON DAY +1 AND 10MG/M2 DAILY ON DAY +3 AND+6
  4. ATG [Suspect]
     Active Substance: LAPINE T-LYMPHOCYTE IMMUNE GLOBULIN
     Indication: ALLOGENIC STEM CELL TRANSPLANTATION
     Dosage: ATG 3.75MG/KG DAILY ON DAYS -2 AND -1
  5. MELPHALAN. [Suspect]
     Active Substance: MELPHALAN
     Indication: ALLOGENIC STEM CELL TRANSPLANTATION
     Dosage: MELPHALAN 25MG/M2 DAILY ON DAYS -4 AND -3
  6. CYCLOPHOSPHAMIDE. [Suspect]
     Active Substance: CYCLOPHOSPHAMIDE
     Indication: ALLOGENIC STEM CELL TRANSPLANTATION
     Dosage: CYCLOPHOSPHAMIDE 25MG/KG DAILY ON DAYS -6 AND -5
  7. FLUDARABINE [Suspect]
     Active Substance: FLUDARABINE PHOSPHATE
     Indication: ALLOGENIC STEM CELL TRANSPLANTATION
     Dosage: FLUDARABINE 50MG/M2 DAILY FROM DAYS -5 TO -3
  8. BUSULFAN. [Suspect]
     Active Substance: BUSULFAN
     Indication: ALLOGENIC STEM CELL TRANSPLANTATION
     Dosage: BUSULFAN 3.2MG/KG DAILY FROM DAYS -5 TO -3
  9. CICLOSPORINE [Suspect]
     Active Substance: CYCLOSPORINE
     Indication: ALLOGENIC STEM CELL TRANSPLANTATION
     Dosage: AT DOSE OF 2MG/KG ON DAY -3 AND ADJUSTED TO PLASMA TARGET LEVEL 200-300 UG/L.
  10. METHOTREXATE. [Suspect]
     Active Substance: METHOTREXATE
     Indication: ALLOGENIC STEM CELL TRANSPLANTATION
     Dosage: METHOTREXATE 15MG/M2 DAILY ON DAY +1 AND 10MG/M2 DAILY ON DAY +3 AND+6
  11. ATG [Suspect]
     Active Substance: LAPINE T-LYMPHOCYTE IMMUNE GLOBULIN
     Indication: ALLOGENIC STEM CELL TRANSPLANTATION
     Dosage: ATG 2.5MG/KG DAILY ON DAY -2 AND 1.25MG/KG DAILY ON DAYS +7
  12. ATG [Suspect]
     Active Substance: LAPINE T-LYMPHOCYTE IMMUNE GLOBULIN
     Indication: ALLOGENIC STEM CELL TRANSPLANTATION
     Dosage: ATG 2.5MG/KG DAILY ON DAY -2 AND 1.25MG/KG DAILY ON DAYS +7

REACTIONS (9)
  - Cytopenia [Recovered/Resolved]
  - Acute graft versus host disease [Recovered/Resolved]
  - Cystitis viral [Recovered/Resolved]
  - BK virus infection [Recovered/Resolved]
  - Cytomegalovirus test positive [Recovered/Resolved]
  - Mucosal inflammation [Recovered/Resolved]
  - Sepsis [Recovered/Resolved]
  - Neutropenia [Recovered/Resolved]
  - Thrombocytopenia [Recovered/Resolved]
